FAERS Safety Report 7950377-5 (Version None)
Quarter: 2011Q4

REPORT INFORMATION
  Report Type: 
  Country: None (occurrence: None)
  Receive Date: 20111130
  Receipt Date: 20111121
  Transmission Date: 20120403
  Serious: Yes (Other)
  Sender: FDA-Public Use
  Company Number: CN-ASTRAZENECA-2011SE70589

PATIENT
  Sex: Female

DRUGS (6)
  1. LIDOCAINE [Suspect]
     Indication: EPIDURAL ANAESTHESIA
     Route: 065
  2. ROPIVACAINE HYDROCHLORIDE [Suspect]
     Indication: EPIDURAL ANAESTHESIA
     Route: 042
  3. DEXMEDETOMIDINE HYDROCHLORIDE [Suspect]
     Dosage: 0.4 UG/(KG.H)
     Route: 042
  4. COMPOUND SODIUM LACTATE [Suspect]
     Route: 042
  5. DEXMEDETOMIDINE HYDROCHLORIDE [Suspect]
     Route: 042
  6. PROPOFOL [Suspect]
     Indication: EPIDURAL ANAESTHESIA
     Dosage: 60 UG/(KG.MIN)
     Route: 042

REACTIONS (4)
  - RESPIRATORY DEPRESSION [None]
  - INJECTION SITE PAIN [None]
  - BRADYCARDIA [None]
  - HYPOTENSION [None]
